FAERS Safety Report 13560130 (Version 1)
Quarter: 2017Q2

REPORT INFORMATION
  Report Type: Spontaneous
  Country: US (occurrence: US)
  Receive Date: 20170518
  Receipt Date: 20170518
  Transmission Date: 20170830
  Serious: No
  Sender: FDA-Public Use
  Company Number: US-PFIZER INC-2017212196

PATIENT
  Age: 62 Year
  Sex: Female
  Weight: 73.47 kg

DRUGS (2)
  1. RAPAMUNE [Suspect]
     Active Substance: SIROLIMUS
     Indication: LYMPHANGIOLEIOMYOMATOSIS
     Dosage: 1 MG, 1X/DAY
     Route: 048
     Dates: start: 201501
  2. SIMVASTATIN. [Suspect]
     Active Substance: SIMVASTATIN
     Dosage: UNK
     Dates: start: 201605, end: 201607

REACTIONS (6)
  - Malaise [Unknown]
  - Gingival disorder [Unknown]
  - Nasopharyngitis [Unknown]
  - Gastric disorder [Unknown]
  - Infection [Unknown]
  - Stomatitis [Unknown]
